FAERS Safety Report 7655087-X (Version None)
Quarter: 2011Q3

REPORT INFORMATION
  Report Type: 
  Country: None (occurrence: None)
  Receive Date: 20110729
  Receipt Date: 20110719
  Transmission Date: 20111222
  Serious: Yes (Hospitalization, Other)
  Sender: FDA-Public Use
  Company Number: 2010SP056153

PATIENT
  Age: 22 Year
  Sex: Female
  Weight: 96.6162 kg

DRUGS (1)
  1. NUVARING [Suspect]
     Indication: CONTRACEPTION
     Dosage: QM
     Dates: start: 20070315, end: 20071207

REACTIONS (18)
  - DEEP VEIN THROMBOSIS [None]
  - DIARRHOEA [None]
  - BRONCHIAL HYPERREACTIVITY [None]
  - INJURY [None]
  - BRONCHITIS [None]
  - MENTAL DISORDER [None]
  - CHOLECYSTITIS [None]
  - BRONCHOSPASM [None]
  - PULMONARY EMBOLISM [None]
  - FACTOR V LEIDEN MUTATION [None]
  - EMOTIONAL DISORDER [None]
  - TACHYCARDIA [None]
  - ABDOMINAL PAIN [None]
  - HYPERCOAGULATION [None]
  - VENA CAVA THROMBOSIS [None]
  - ANXIETY [None]
  - THROMBOSIS [None]
  - HEART RATE IRREGULAR [None]
